FAERS Safety Report 5873337-7 (Version None)
Quarter: 2008Q3

REPORT INFORMATION
  Report Type: 
  Country: None (occurrence: None)
  Receive Date: 20080903
  Receipt Date: 20080829
  Transmission Date: 20090109
  Serious: Yes (Hospitalization)
  Sender: FDA-Public Use
  Company Number: 2008SP001985

PATIENT
  Age: 71 Year
  Sex: Female
  Weight: 42 kg

DRUGS (18)
  1. TEMODAL [Suspect]
     Indication: GLIOBLASTOMA MULTIFORME
     Dosage: SEE IMAGE
     Route: 048
     Dates: start: 20061117, end: 20061121
  2. TEMODAL [Suspect]
     Indication: RECURRENT CANCER
     Dosage: SEE IMAGE
     Route: 048
     Dates: start: 20061117, end: 20061121
  3. TEMODAL [Suspect]
     Indication: GLIOBLASTOMA MULTIFORME
     Dosage: SEE IMAGE
     Route: 048
     Dates: start: 20061216, end: 20061220
  4. TEMODAL [Suspect]
     Indication: RECURRENT CANCER
     Dosage: SEE IMAGE
     Route: 048
     Dates: start: 20061216, end: 20061220
  5. TEMODAL [Suspect]
     Indication: GLIOBLASTOMA MULTIFORME
     Dosage: SEE IMAGE
     Route: 048
     Dates: start: 20070112, end: 20070116
  6. TEMODAL [Suspect]
     Indication: RECURRENT CANCER
     Dosage: SEE IMAGE
     Route: 048
     Dates: start: 20070112, end: 20070116
  7. TEMODAL [Suspect]
     Indication: GLIOBLASTOMA MULTIFORME
     Dosage: SEE IMAGE
     Route: 048
     Dates: start: 20070223, end: 20070227
  8. TEMODAL [Suspect]
     Indication: RECURRENT CANCER
     Dosage: SEE IMAGE
     Route: 048
     Dates: start: 20070223, end: 20070227
  9. TEMODAL [Suspect]
     Indication: GLIOBLASTOMA MULTIFORME
     Dosage: SEE IMAGE
     Route: 048
     Dates: start: 20070323, end: 20070327
  10. TEMODAL [Suspect]
     Indication: RECURRENT CANCER
     Dosage: SEE IMAGE
     Route: 048
     Dates: start: 20070323, end: 20070327
  11. TEMODAL [Suspect]
     Indication: GLIOBLASTOMA MULTIFORME
     Dosage: SEE IMAGE
     Route: 048
     Dates: start: 20070419, end: 20070423
  12. TEMODAL [Suspect]
     Indication: RECURRENT CANCER
     Dosage: SEE IMAGE
     Route: 048
     Dates: start: 20070419, end: 20070423
  13. PREDNISONE [Suspect]
     Indication: GLIOBLASTOMA MULTIFORME
     Dosage: PO
     Route: 048
  14. PREDNISONE [Suspect]
     Indication: RECURRENT CANCER
     Dosage: PO
     Route: 048
  15. ALEVIATIN [Concomitant]
  16. RANITAC [Concomitant]
  17. MAGNESIUM OXIDE [Concomitant]
  18. ZOFRAN ZYDIS [Concomitant]

REACTIONS (1)
  - PNEUMONIA [None]
